FAERS Safety Report 16305026 (Version 1)
Quarter: 2019Q2

REPORT INFORMATION
  Report Type: Report from Study
  Country: US (occurrence: US)
  Receive Date: 20190513
  Receipt Date: 20190513
  Transmission Date: 20190711
  Serious: Yes (Hospitalization)
  Sender: FDA-Public Use
  Company Number: US-BAYER-2019-093449

PATIENT
  Age: 66 Year
  Sex: Male

DRUGS (1)
  1. STIVARGA [Suspect]
     Active Substance: REGORAFENIB
     Indication: COLON CANCER
     Dosage: DAILY DOSE 160 MG (3 WKS ON THEN 1 WK OFF)
     Route: 048
     Dates: end: 20190226

REACTIONS (2)
  - Hospitalisation [None]
  - Drug ineffective [None]

NARRATIVE: CASE EVENT DATE: 20190226
